FAERS Safety Report 8336131-3 (Version None)
Quarter: 2012Q1

REPORT INFORMATION
  Report Type: 
  Country: None (occurrence: None)
  Receive Date: 20120329
  Receipt Date: 20100127
  Transmission Date: 20120608
  Serious: Yes (Other)
  Sender: FDA-Public Use
  Company Number: PHEH2010US01493

PATIENT
  Age: 78 Year
  Sex: Female

DRUGS (1)
  1. EXELON [Suspect]
     Indication: BASAL GANGLION DEGENERATION
     Dosage: 9.5 MG,TRANSDERMAL
     Route: 062
     Dates: start: 20080101, end: 20100101

REACTIONS (1)
  - WEIGHT DECREASED [None]
